FAERS Safety Report 5927713-4 (Version None)
Quarter: 2008Q4

REPORT INFORMATION
  Report Type: 
  Country: None (occurrence: None)
  Receive Date: 20081023
  Receipt Date: 20081013
  Transmission Date: 20090506
  Serious: Yes (Hospitalization, Other)
  Sender: FDA-Public Use
  Company Number: US-PURDUE-USA_2002_0003183

PATIENT
  Age: 30 Year
  Sex: Female
  Weight: 127 kg

DRUGS (8)
  1. OXYCONTIN [Suspect]
     Indication: PAIN
     Dosage: 320 MG, Q12H
     Route: 048
     Dates: start: 20000531
  2. ROXICODONE [Suspect]
     Indication: PAIN
     Dosage: 30 MG, QID
     Route: 048
     Dates: start: 20011102, end: 20020103
  3. VIOXX [Concomitant]
     Indication: DRUG USE FOR UNKNOWN INDICATION
     Dosage: 50 MG, DAILY
     Route: 048
     Dates: start: 20010531
  4. BACLOFEN [Concomitant]
     Indication: DRUG USE FOR UNKNOWN INDICATION
     Dosage: 20 MG, TID
     Route: 048
     Dates: start: 20010531, end: 20010716
  5. SOMA [Suspect]
     Indication: DRUG USE FOR UNKNOWN INDICATION
     Dosage: 350 MG, QID
     Route: 048
     Dates: start: 20010716, end: 20011029
  6. PARAFON FORTE [Concomitant]
     Indication: DRUG USE FOR UNKNOWN INDICATION
     Dosage: 500 MG, TID
     Route: 048
     Dates: start: 20010820
  7. XANAX [Suspect]
     Indication: DRUG USE FOR UNKNOWN INDICATION
     Dosage: 1 MG, QID
     Route: 048
     Dates: start: 20010820, end: 20011126
  8. LIDOCAINE [Suspect]
     Indication: DRUG USE FOR UNKNOWN INDICATION
     Dosage: 1 PATCH, Q12H
     Route: 062
     Dates: start: 20011126

REACTIONS (3)
  - ASPIRATION [None]
  - CONVULSION [None]
  - VOMITING [None]
